FAERS Safety Report 6608307-4 (Version None)
Quarter: 2010Q1

REPORT INFORMATION
  Report Type: 
  Country: None (occurrence: None)
  Receive Date: 20100301
  Receipt Date: 20100215
  Transmission Date: 20100710
  Serious: Yes (Hospitalization)
  Sender: FDA-Public Use
  Company Number: US-SANOFI-AVENTIS-2010SA009319

PATIENT
  Age: 64 Year
  Sex: Male

DRUGS (5)
  1. ALFUZOSIN HCL [Suspect]
     Indication: ERECTILE DYSFUNCTION
     Dosage: BOTTLE A
     Route: 065
     Dates: start: 20090917, end: 20091209
  2. BLINDED THERAPY [Suspect]
     Dosage: BOTTLE B
     Route: 065
     Dates: start: 20091210, end: 20100122
  3. LISINOPRIL [Concomitant]
     Indication: DRUG USE FOR UNKNOWN INDICATION
     Route: 065
     Dates: start: 20040101
  4. SIMVASTATIN [Concomitant]
     Indication: DRUG USE FOR UNKNOWN INDICATION
     Route: 065
     Dates: start: 20040101
  5. ASPIRIN [Concomitant]
     Indication: DRUG USE FOR UNKNOWN INDICATION
     Route: 065

REACTIONS (3)
  - DIZZINESS [None]
  - DYSPNOEA [None]
  - NASOPHARYNGITIS [None]
